FAERS Safety Report 25304132 (Version 1)
Quarter: 2025Q2

REPORT INFORMATION
  Report Type: Spontaneous
  Country: US (occurrence: US)
  Receive Date: 20250513
  Receipt Date: 20250513
  Transmission Date: 20250717
  Serious: Yes (Other)
  Sender: NOVO NORDISK
  Company Number: US-NOVOPROD-1425994

PATIENT
  Age: 52 Year
  Sex: Female
  Weight: 113.38 kg

DRUGS (1)
  1. OZEMPIC [Suspect]
     Active Substance: SEMAGLUTIDE
     Indication: Weight control

REACTIONS (4)
  - Autoimmune disorder [Unknown]
  - Hypoacusis [Unknown]
  - Reading disorder [Unknown]
  - Product use in unapproved indication [Unknown]
